FAERS Safety Report 20582501 (Version 1)
Quarter: 2022Q1

REPORT INFORMATION
  Report Type: Spontaneous
  Country: US (occurrence: US)
  Receive Date: 20220311
  Receipt Date: 20220311
  Transmission Date: 20220423
  Serious: No
  Sender: FDA-Public Use
  Company Number: US-LUPIN PHARMACEUTICALS INC.-2022-03225

PATIENT
  Sex: Male

DRUGS (3)
  1. ALBUTEROL SULFATE [Suspect]
     Active Substance: ALBUTEROL SULFATE
     Indication: Product used for unknown indication
     Dosage: UNK,(INHALE 2 PUFFS PRN Q 4 H)
     Dates: start: 2022
  2. ALBUTEROL SULFATE [Suspect]
     Active Substance: ALBUTEROL SULFATE
     Dosage: UNK UNK, PRN,  INHALE 2 PUFFS PRN Q 4 H
     Dates: start: 2022
  3. ALBUTEROL SULFATE [Suspect]
     Active Substance: ALBUTEROL SULFATE
     Dosage: UNK UNK, PRN,  INHALE 2 PUFFS PRN Q 4 H
     Dates: start: 2022

REACTIONS (3)
  - Device ineffective [Unknown]
  - Wrong technique in device usage process [Unknown]
  - Device physical property issue [Unknown]
